FAERS Safety Report 8615107-2 (Version None)
Quarter: 2012Q3

REPORT INFORMATION
  Report Type: 
  Country: None (occurrence: None)
  Receive Date: 20120823
  Receipt Date: 20120817
  Transmission Date: 20120928
  Serious: Yes (Other)
  Sender: FDA-Public Use
  Company Number: GB-PFIZER INC-2012202972

PATIENT

DRUGS (1)
  1. ETHOSUXIMIDE [Suspect]

REACTIONS (1)
  - PANCREATITIS ACUTE [None]
